FAERS Safety Report 14709656 (Version 2)
Quarter: 2018Q2

REPORT INFORMATION
  Report Type: Spontaneous
  Country: US (occurrence: US)
  Receive Date: 20180403
  Receipt Date: 20180511
  Transmission Date: 20180711
  Serious: Yes (Other)
  Sender: FDA-Public Use
  Company Number: US-JNJFOC-20180333570

PATIENT
  Age: 85 Year
  Sex: Female
  Weight: 68.04 kg

DRUGS (4)
  1. SYNTHROID [Concomitant]
     Active Substance: LEVOTHYROXINE SODIUM
     Indication: THYROID DISORDER
     Route: 065
  2. TERAZOL 7 [Suspect]
     Active Substance: TERCONAZOLE
     Indication: FUNGAL INFECTION
     Route: 067
     Dates: start: 201803
  3. TERAZOL 7 [Suspect]
     Active Substance: TERCONAZOLE
     Indication: FUNGAL INFECTION
     Route: 067
     Dates: start: 1990
  4. CORGARD [Concomitant]
     Active Substance: NADOLOL
     Indication: HEART RATE IRREGULAR
     Route: 065

REACTIONS (5)
  - Drug dose omission [Unknown]
  - Surgery [Unknown]
  - Expired product administered [Unknown]
  - Gastroenteritis viral [Unknown]
  - Product label issue [Unknown]

NARRATIVE: CASE EVENT DATE: 201803
